FAERS Safety Report 18588001 (Version 9)
Quarter: 2021Q4

REPORT INFORMATION
  Report Type: Spontaneous
  Country: IT (occurrence: IT)
  Receive Date: 20201207
  Receipt Date: 20211014
  Transmission Date: 20220303
  Serious: Yes (Life-Threatening, Hospitalization)
  Sender: FDA-Public Use
  Company Number: IT-CELGENE-ITA-20201200474

PATIENT
  Age: 70 Year
  Sex: Male
  Weight: 90 kg

DRUGS (23)
  1. LENALIDOMIDE [Suspect]
     Active Substance: LENALIDOMIDE
     Indication: Plasma cell myeloma
     Route: 048
     Dates: start: 20191028, end: 20191124
  2. LENALIDOMIDE [Suspect]
     Active Substance: LENALIDOMIDE
     Route: 048
     Dates: start: 20191125, end: 20191129
  3. LENALIDOMIDE [Suspect]
     Active Substance: LENALIDOMIDE
     Route: 048
     Dates: start: 20191230, end: 20200816
  4. LENALIDOMIDE [Suspect]
     Active Substance: LENALIDOMIDE
     Route: 048
     Dates: start: 20200821, end: 20200910
  5. LENALIDOMIDE [Suspect]
     Active Substance: LENALIDOMIDE
     Route: 048
     Dates: start: 20201030, end: 20201112
  6. DEXAMETHASONE [Suspect]
     Active Substance: DEXAMETHASONE
     Indication: Plasma cell myeloma
     Route: 048
     Dates: start: 20191028
  7. DARATUMUMAB [Concomitant]
     Active Substance: DARATUMUMAB
     Indication: Plasma cell myeloma
     Route: 058
     Dates: start: 20191028, end: 20201030
  8. VELCADE [Concomitant]
     Active Substance: BORTEZOMIB
     Indication: Product used for unknown indication
     Route: 058
     Dates: start: 20191028, end: 20191205
  9. VELCADE [Concomitant]
     Active Substance: BORTEZOMIB
     Route: 065
     Dates: start: 20191230, end: 20200102
  10. CYANOCOBALAMIN [Concomitant]
     Active Substance: CYANOCOBALAMIN
     Indication: Anaemia
     Dosage: 5000 IU (INTERNATIONAL UNIT)
     Route: 030
     Dates: start: 20201223, end: 20201226
  11. CYANOCOBALAMIN [Concomitant]
     Active Substance: CYANOCOBALAMIN
     Dosage: 1000 IU (INTERNATIONAL UNIT)
     Route: 030
     Dates: start: 20201227
  12. CYANOCOBALAMIN [Concomitant]
     Active Substance: CYANOCOBALAMIN
     Dosage: 5000 IU (INTERNATIONAL UNIT)
     Route: 030
     Dates: start: 20210111
  13. CYANOCOBALAMIN [Concomitant]
     Active Substance: CYANOCOBALAMIN
     Dosage: 5000 IU (INTERNATIONAL UNIT)
     Route: 030
     Dates: start: 20210112, end: 20210226
  14. CALCIFEDIOL [Concomitant]
     Active Substance: CALCIFEDIOL
     Indication: Vitamin D deficiency
     Dosage: 10 DROPS
     Route: 065
     Dates: start: 20201223, end: 20210121
  15. CEFIXIME [Concomitant]
     Active Substance: CEFIXIME
     Indication: COVID-19
     Dosage: 400 MILLIGRAM
     Route: 065
     Dates: start: 20201223, end: 20210101
  16. OXYGEN [Concomitant]
     Active Substance: OXYGEN
     Indication: COVID-19
     Route: 065
     Dates: start: 20201215
  17. OXYGEN [Concomitant]
     Active Substance: OXYGEN
     Dosage: 1.5 LITERS??PER MINUTE PER 24 HOURS
     Route: 065
     Dates: start: 20201223
  18. PREDNISONE [Concomitant]
     Active Substance: PREDNISONE
     Indication: COVID-19
     Dosage: 25 MILLIGRAM
     Route: 065
     Dates: start: 20201223, end: 20201228
  19. PREDNISONE [Concomitant]
     Active Substance: PREDNISONE
     Dosage: 12.5 MILLIGRAM
     Route: 065
     Dates: start: 20201229, end: 20210104
  20. PREDNISONE [Concomitant]
     Active Substance: PREDNISONE
     Dosage: 6.25 MILLIGRAM
     Route: 065
     Dates: start: 20210105, end: 20210115
  21. ACYCLOVIR [Concomitant]
     Active Substance: ACYCLOVIR
     Indication: Antiviral prophylaxis
     Dosage: 400 MILLIGRAM
     Route: 065
  22. SULFAMETHOXAZOLE\TRIMETHOPRIM [Concomitant]
     Active Substance: SULFAMETHOXAZOLE\TRIMETHOPRIM
     Indication: Antibiotic prophylaxis
     Route: 048
  23. PANTOPRAZOLE [Concomitant]
     Active Substance: PANTOPRAZOLE
     Indication: Prophylaxis
     Dosage: 40 MILLIGRAM
     Route: 065

REACTIONS (1)
  - COVID-19 pneumonia [Recovered/Resolved with Sequelae]

NARRATIVE: CASE EVENT DATE: 20201111
